FAERS Safety Report 6013828-1 (Version None)
Quarter: 2008Q4

REPORT INFORMATION
  Report Type: 
  Country: None (occurrence: None)
  Receive Date: 20081219
  Receipt Date: 20081208
  Transmission Date: 20090506
  Serious: Yes (Death, Other)
  Sender: FDA-Public Use
  Company Number: JP-PFIZER INC-2008100281

PATIENT

DRUGS (2)
  1. SOLU-MEDROL [Suspect]
     Indication: ANTI-NEUTROPHIL CYTOPLASMIC ANTIBODY POSITIVE VASCULITIS
     Dosage: 0.5 MG, UNK
     Route: 042
     Dates: start: 20070101
  2. PREDNISOLONE AND PREDNISOLONE STEAGLATE [Suspect]
     Indication: ANTI-NEUTROPHIL CYTOPLASMIC ANTIBODY POSITIVE VASCULITIS
     Dosage: 20 MG, UNK
     Route: 048
     Dates: start: 20070101

REACTIONS (3)
  - BENIGN PANCREATIC NEOPLASM [None]
  - MULTI-ORGAN FAILURE [None]
  - PANCREATITIS ACUTE [None]
